FAERS Safety Report 4530910-6 (Version None)
Quarter: 2004Q4

REPORT INFORMATION
  Report Type: 
  Country: None (occurrence: None)
  Receive Date: 20041215
  Receipt Date: 20040712
  Transmission Date: 20050328
  Serious: Yes (Hospitalization, Other)
  Sender: FDA-Public Use
  Company Number: 2004105214

PATIENT
  Age: 64 Year
  Sex: Male

DRUGS (2)
  1. CELEBREX [Suspect]
     Indication: OSTEOARTHRITIS
     Dosage: 400 MG (1 IN 1 D)
     Dates: start: 20040701, end: 20040701
  2. ALL OTHER THERAPEUTIC PRODUCTS (ALL OTHER THERAPEUTIC PRODUCT) [Suspect]
     Indication: ANAESTHESIA
     Dates: start: 20040701

REACTIONS (4)
  - HAEMORRHOIDS [None]
  - INTESTINAL OBSTRUCTION [None]
  - MEDICATION ERROR [None]
  - URINARY RETENTION [None]
